FAERS Safety Report 13456173 (Version 1)
Quarter: 2017Q2

REPORT INFORMATION
  Report Type: Spontaneous
  Country: US (occurrence: US)
  Receive Date: 20170419
  Receipt Date: 20170419
  Transmission Date: 20170830
  Serious: Yes (Other)
  Sender: FDA-Public Use
  Company Number: None

PATIENT
  Age: 74 Year
  Sex: Female
  Weight: 66.74 kg

DRUGS (1)
  1. ZOLEDRONIC ACID [Suspect]
     Active Substance: ZOLEDRONIC ACID
     Indication: OSTEOPOROSIS
     Dosage: 50MG/100ML ONCE IV
     Route: 042
     Dates: start: 20170328

REACTIONS (5)
  - Decreased appetite [None]
  - Pyrexia [None]
  - Pain [None]
  - Muscular weakness [None]
  - Malaise [None]

NARRATIVE: CASE EVENT DATE: 20170328
